FAERS Safety Report 21238157 (Version 2)
Quarter: 2023Q2

REPORT INFORMATION
  Report Type: Spontaneous
  Country: US (occurrence: US)
  Receive Date: 20220822
  Receipt Date: 20230627
  Transmission Date: 20230721
  Serious: Yes (Other)
  Sender: FDA-Public Use
  Company Number: US-ASTELLAS-2022US029548

PATIENT
  Sex: Male

DRUGS (1)
  1. XTANDI [Suspect]
     Active Substance: ENZALUTAMIDE
     Indication: Prostate cancer
     Dosage: UNK UNK, UNKNOWN FREQ.
     Route: 048
     Dates: start: 20151223

REACTIONS (5)
  - Neuropathy peripheral [Unknown]
  - Loss of consciousness [Unknown]
  - Pollakiuria [Not Recovered/Not Resolved]
  - Aphasia [Unknown]
  - Fatigue [Unknown]
